FAERS Safety Report 4866301-8 (Version None)
Quarter: 2005Q4

REPORT INFORMATION
  Report Type: 
  Country: None (occurrence: None)
  Receive Date: 20051221
  Receipt Date: 20051212
  Transmission Date: 20060501
  Serious: Yes (Hospitalization)
  Sender: FDA-Public Use
  Company Number: 2005168474

PATIENT
  Age: 44 Year
  Sex: Male
  Weight: 108.8633 kg

DRUGS (5)
  1. LIPITOR [Suspect]
     Indication: BLOOD CHOLESTEROL INCREASED
     Dosage: 10 MG (10 MG, 1 IN 1 D)
     Dates: end: 20050101
  2. CORTISONE ACETATE [Suspect]
     Indication: PAIN
     Dates: start: 20050101
  3. ZETIA [Concomitant]
  4. PLAVIX [Concomitant]
  5. MICARDIS [Concomitant]

REACTIONS (9)
  - ANGIOPLASTY [None]
  - ARTHRALGIA [None]
  - BACK PAIN [None]
  - ENZYME ABNORMALITY [None]
  - MUSCLE ENZYME INCREASED [None]
  - MUSCLE STRAIN [None]
  - MUSCULOSKELETAL STIFFNESS [None]
  - PAIN [None]
  - SHOULDER PAIN [None]
